FAERS Safety Report 6901456-2 (Version None)
Quarter: 2010Q3

REPORT INFORMATION
  Report Type: 
  Country: None (occurrence: None)
  Receive Date: 20100803
  Receipt Date: 20080211
  Transmission Date: 20110219
  Serious: No
  Sender: FDA-Public Use
  Company Number: US-PFIZER INC-2008013331

PATIENT
  Sex: Female
  Weight: 63.5 kg

DRUGS (4)
  1. LYRICA [Suspect]
     Indication: MOOD SWINGS
     Dates: start: 20080130
  2. DICLOFENAC SODIUM [Concomitant]
  3. CONTRACEPTIVE, UNSPECIFIED [Concomitant]
  4. ZYRTEC [Concomitant]

REACTIONS (1)
  - DRUG INEFFECTIVE [None]
